FAERS Safety Report 6533162-0 (Version None)
Quarter: 2010Q1

REPORT INFORMATION
  Report Type: 
  Country: None (occurrence: None)
  Receive Date: 20100111
  Receipt Date: 20100106
  Transmission Date: 20100710
  Serious: Yes (Hospitalization)
  Sender: FDA-Public Use
  Company Number: JP-BRISTOL-MYERS SQUIBB COMPANY-14647895

PATIENT
  Age: 50 Year
  Sex: Female
  Weight: 81 kg

DRUGS (7)
  1. ABATACEPT [Suspect]
     Indication: RHEUMATOID ARTHRITIS
     Route: 041
     Dates: start: 20070815
  2. PREDONINE [Suspect]
     Indication: RHEUMATOID ARTHRITIS
     Dosage: FORM-TAB STARTED 12 WEEKS PRIOR TO ENROLLMENT
     Route: 048
  3. VOLTAREN [Concomitant]
     Indication: RHEUMATOID ARTHRITIS
     Dosage: FORM-TAB STARTED 12 WEEKS PRIOR TO ENROLLMENT
     Route: 048
  4. FLURBIPROFEN [Concomitant]
     Indication: RHEUMATOID ARTHRITIS
     Dosage: FORM-TAB STARTED 12 WEEKS PRIOR TO ENROLLMENT
     Route: 048
  5. RHEUMATREX [Concomitant]
     Indication: RHEUMATOID ARTHRITIS
     Dosage: FORM-CAP STARTED 12 WEEKS PRIOR TO ENROLLMENT
     Route: 048
  6. GAMOFA [Concomitant]
     Indication: GASTRITIS PROPHYLAXIS
     Dosage: FORM-TAB PRIOR TO OBTAINING IC
     Route: 048
  7. GLIMEPIRIDE [Concomitant]
     Indication: DIABETES MELLITUS
     Dosage: TILL 20MAY08,1MG BID. FROM 21MAY08-ONG,2.5MG BID FORM-TAB.
     Route: 048

REACTIONS (1)
  - DIABETES MELLITUS [None]
